FAERS Safety Report 8300643-9 (Version None)
Quarter: 2012Q2

REPORT INFORMATION
  Report Type: 
  Country: None (occurrence: None)
  Receive Date: 20120420
  Receipt Date: 20120412
  Transmission Date: 20120825
  Serious: Yes (Hospitalization)
  Sender: FDA-Public Use
  Company Number: PHHY2011US58913

PATIENT
  Sex: Male
  Weight: 126.36 kg

DRUGS (2)
  1. EXJADE [Suspect]
     Indication: HAEMOCHROMATOSIS
     Dosage: 1000 MG, BID
     Route: 048
     Dates: start: 20110511, end: 20110607
  2. EXJADE [Suspect]
     Route: 048

REACTIONS (4)
  - BLOOD CULTURE POSITIVE [None]
  - INFECTION [None]
  - CHRONIC LYMPHOCYTIC LEUKAEMIA [None]
  - ACTIVITIES OF DAILY LIVING IMPAIRED [None]
